FAERS Safety Report 5300704-2 (Version None)
Quarter: 2007Q2

REPORT INFORMATION
  Report Type: 
  Country: None (occurrence: None)
  Receive Date: 20070418
  Receipt Date: 20070416
  Transmission Date: 20071010
  Serious: Yes (Hospitalization)
  Sender: FDA-Public Use
  Company Number: US-GENENTECH-228257

PATIENT
  Age: 80 Year
  Sex: Male

DRUGS (3)
  1. AVASTIN [Suspect]
     Indication: LUNG NEOPLASM MALIGNANT
     Dosage: UNK, Q2W
     Dates: start: 20051001, end: 20060731
  2. ERLOTINIB [Suspect]
     Indication: DRUG USE FOR UNKNOWN INDICATION
     Dosage: 150 MG, QD
  3. ERLOTINIB [Suspect]
     Dosage: 100 MG, QD

REACTIONS (2)
  - PULMONARY OEDEMA [None]
  - PURPURA [None]
